FAERS Safety Report 19764951 (Version 2)
Quarter: 2021Q4

REPORT INFORMATION
  Report Type: Spontaneous
  Country: US (occurrence: US)
  Receive Date: 20210831
  Receipt Date: 20211020
  Transmission Date: 20220303
  Serious: No
  Sender: FDA-Public Use
  Company Number: US-TEVA-2021-US-1946671

PATIENT
  Age: 80 Year
  Sex: Female

DRUGS (4)
  1. BRINZOLAMIDE [Suspect]
     Active Substance: BRINZOLAMIDE
     Dosage: 1 DROP EVERY 12 HOURS EACH EYE, OU
     Route: 047
     Dates: start: 20210710
  2. ATENOLOL [Concomitant]
     Active Substance: ATENOLOL
  3. ELIQUIS [Concomitant]
     Active Substance: APIXABAN
  4. PREDNISONE [Concomitant]
     Active Substance: PREDNISONE
     Dosage: RIGHT EYE

REACTIONS (4)
  - Visual impairment [Unknown]
  - Device malfunction [Unknown]
  - Device delivery system issue [Unknown]
  - Product contamination physical [Unknown]

NARRATIVE: CASE EVENT DATE: 20210101
